FAERS Safety Report 12297074 (Version 1)
Quarter: 2016Q2

REPORT INFORMATION
  Report Type: Report from Study
  Country: US (occurrence: US)
  Receive Date: 20160422
  Receipt Date: 20160422
  Transmission Date: 20160815
  Serious: Yes (Hospitalization)
  Sender: FDA-Public Use
  Company Number: US-BAYER-2016-072694

PATIENT
  Sex: Male

DRUGS (1)
  1. STIVARGA [Suspect]
     Active Substance: REGORAFENIB
     Indication: DIFFUSE LARGE B-CELL LYMPHOMA
     Dosage: 120 MG, QD
     Route: 048
     Dates: start: 201603

REACTIONS (2)
  - Hospitalisation [None]
  - Off label use [None]
